FAERS Safety Report 8757897 (Version 3)
Quarter: 2016Q1

REPORT INFORMATION
  Report Type: Spontaneous
  Country: US (occurrence: US)
  Receive Date: 20120828
  Receipt Date: 20160210
  Transmission Date: 20160526
  Serious: Yes (Hospitalization, Disabling, Other)
  Sender: FDA-Public Use
  Company Number: US-009507513-1208USA009502

PATIENT
  Sex: Female

DRUGS (5)
  1. FOSAMAX PLUS D [Suspect]
     Active Substance: ALENDRONATE SODIUM\CHOLECALCIFEROL
     Indication: OSTEOPOROSIS
     Dosage: 70 MG, UNK
     Route: 048
     Dates: start: 20070315, end: 20090127
  2. FOSAMAX [Suspect]
     Active Substance: ALENDRONATE SODIUM
     Dosage: 70 MG, UNK
     Route: 048
     Dates: start: 20090226
  3. ALENDRONATE SODIUM. [Suspect]
     Active Substance: ALENDRONATE SODIUM
     Indication: OSTEOPOROSIS
     Dosage: 70 MG, UNK
     Route: 048
     Dates: start: 20090129, end: 20090826
  4. FOSAMAX [Suspect]
     Active Substance: ALENDRONATE SODIUM
     Indication: OSTEOPOROSIS
     Dosage: 70 MG, UNK
     Route: 048
     Dates: start: 20040409, end: 20080227
  5. OS-CAL + D [Concomitant]
     Dosage: 500 MG, UNK

REACTIONS (8)
  - Femur fracture [Not Recovered/Not Resolved]
  - Cystitis [Unknown]
  - Anxiety [Not Recovered/Not Resolved]
  - Spinal compression fracture [Unknown]
  - Hypertension [Unknown]
  - Injury [Unknown]
  - Gastrooesophageal reflux disease [Unknown]
  - Incision site cellulitis [Unknown]

NARRATIVE: CASE EVENT DATE: 2004
